FAERS Safety Report 21778249 (Version 1)
Quarter: 2022Q4

REPORT INFORMATION
  Report Type: Spontaneous
  Country: GB (occurrence: GB)
  Receive Date: 20221226
  Receipt Date: 20221226
  Transmission Date: 20230113
  Serious: Yes (Other)
  Sender: FDA-Public Use
  Company Number: GB-002147023-NVSC2022GB276358

PATIENT
  Age: 49 Year
  Sex: Female

DRUGS (20)
  1. CAPECITABINE [Suspect]
     Active Substance: CAPECITABINE
     Indication: Breast cancer stage IV
     Dosage: UNK (SECOND LINE TREATMENT, PFS 6 MONTHS)
     Route: 065
     Dates: start: 202004
  2. FULVESTRANT [Suspect]
     Active Substance: FULVESTRANT
     Indication: Hormone receptor positive HER2 negative breast cancer
     Dosage: UNK (FOURTH LINE TREATMENT, PFS 14 MONTHS ONGOING)
     Route: 065
     Dates: start: 202109
  3. ZOLEDRONIC ACID [Suspect]
     Active Substance: ZOLEDRONIC ACID
     Indication: Breast cancer stage IV
     Dosage: UNK
     Route: 065
     Dates: start: 2019
  4. ALPELISIB [Suspect]
     Active Substance: ALPELISIB
     Indication: Hormone receptor positive HER2 negative breast cancer
     Dosage: 200 MG, QD
     Route: 048
  5. ALPELISIB [Suspect]
     Active Substance: ALPELISIB
     Dosage: 300 MG, QD
     Route: 048
     Dates: start: 202109
  6. ALPELISIB [Suspect]
     Active Substance: ALPELISIB
     Dosage: 250 MG, QD
     Route: 048
  7. CYCLOPHOSPHAMIDE [Suspect]
     Active Substance: CYCLOPHOSPHAMIDE
     Indication: Hormone receptor positive HER2 negative breast cancer
     Dosage: UNK (THIRD LINE TREATMENT, PFS 4 MONTHS)
     Route: 065
     Dates: start: 202103
  8. EPIRUBICIN [Suspect]
     Active Substance: EPIRUBICIN
     Indication: Hormone receptor positive HER2 negative breast cancer
     Dosage: UNK (THIRD LINE TREATMENT, PFS 4 MONTHS)
     Route: 065
     Dates: start: 202103
  9. GLICLAZIDE [Suspect]
     Active Substance: GLICLAZIDE
     Indication: Product used for unknown indication
     Dosage: 80 MG, BID (CYCLE 7)
     Route: 048
  10. GLICLAZIDE [Suspect]
     Active Substance: GLICLAZIDE
     Dosage: 80 MG, QD (CYCLE 5)
     Route: 048
  11. GLICLAZIDE [Suspect]
     Active Substance: GLICLAZIDE
     Dosage: 160 MG, BID (CYCLE 9)
     Route: 048
  12. GLICLAZIDE [Suspect]
     Active Substance: GLICLAZIDE
     Dosage: 40 MG, QD (CYCLE 4)
     Route: 048
  13. LETROZOLE [Suspect]
     Active Substance: LETROZOLE
     Indication: Breast cancer stage IV
     Dosage: UNK
     Route: 065
     Dates: start: 2019
  14. PALBOCICLIB [Suspect]
     Active Substance: PALBOCICLIB
     Indication: Breast cancer stage IV
     Dosage: UNK
     Route: 065
     Dates: start: 2019
  15. AVEENO [Concomitant]
     Active Substance: DIMETHICONE\HOMOSALATE\OCTINOXATE\OCTISALATE\TITANIUM DIOXIDE
     Indication: Product used for unknown indication
     Dosage: UNK
     Route: 065
     Dates: start: 202109
  16. INSULIN HUMAN [Concomitant]
     Active Substance: INSULIN HUMAN
     Indication: Blood glucose abnormal
     Dosage: 36 UNITS, BID (12 UNITS OM AND 24 UNITS ON)
     Route: 065
  17. INSULIN HUMAN [Concomitant]
     Active Substance: INSULIN HUMAN
     Dosage: 24 UNITS ON
     Route: 065
  18. LOPERAMIDE [Concomitant]
     Active Substance: LOPERAMIDE
     Indication: Diarrhoea
     Dosage: UNK
     Route: 065
     Dates: start: 202109
  19. LOPERAMIDE [Concomitant]
     Active Substance: LOPERAMIDE
     Dosage: UNK, ONCE (AVERAGE QD, MAX QID, RARELY NEED)
     Route: 065
  20. METOCLOPRAMIDE [Concomitant]
     Active Substance: METOCLOPRAMIDE
     Indication: Product used for unknown indication
     Dosage: UNK, PRN
     Route: 065
     Dates: start: 202109

REACTIONS (21)
  - Metastases to bone [Unknown]
  - Metastases to lymph nodes [Unknown]
  - Metastases to pancreas [Unknown]
  - Metastases to chest wall [Unknown]
  - Metastases to liver [Unknown]
  - Movement disorder [Recovering/Resolving]
  - Polydipsia [Unknown]
  - Central nervous system lesion [Unknown]
  - Muscle atrophy [Recovering/Resolving]
  - Tumour marker increased [Unknown]
  - Gait disturbance [Recovering/Resolving]
  - Dizziness [Unknown]
  - COVID-19 [Unknown]
  - Swelling face [Recovering/Resolving]
  - Hyperglycaemia [Recovering/Resolving]
  - Depressed mood [Recovering/Resolving]
  - Decreased appetite [Unknown]
  - Nausea [Recovering/Resolving]
  - Diarrhoea [Recovered/Resolved]
  - Headache [Unknown]
  - Fatigue [Unknown]

NARRATIVE: CASE EVENT DATE: 20200301
